FAERS Safety Report 9203620 (Version 5)
Quarter: 2014Q1

REPORT INFORMATION
  Report Type: Spontaneous
  Country: US (occurrence: US)
  Receive Date: 20130402
  Receipt Date: 20140213
  Transmission Date: 20141002
  Serious: Yes (Disabling, Other)
  Sender: FDA-Public Use
  Company Number: US-THROMBOGENICS NV-JET-2013-028

PATIENT
  Age: 57 Year
  Sex: Female

DRUGS (3)
  1. JETREA [Suspect]
     Indication: VITREOUS ADHESIONS
     Dosage: 0.125 MG, ONE TIME DOSE
     Route: 031
     Dates: start: 20130308, end: 20130308
  2. TOPROL [Concomitant]
     Indication: PRODUCT USED FOR UNKNOWN INDICATION
  3. VERELAN [Concomitant]
     Indication: PRODUCT USED FOR UNKNOWN INDICATION

REACTIONS (13)
  - Visual acuity reduced [Not Recovered/Not Resolved]
  - Chromatopsia [Not Recovered/Not Resolved]
  - Retinal oedema [Not Recovered/Not Resolved]
  - Visual field defect [Not Recovered/Not Resolved]
  - Colour blindness acquired [Not Recovered/Not Resolved]
  - Photopsia [Not Recovered/Not Resolved]
  - Vitreous floaters [Not Recovered/Not Resolved]
  - Ophthalmological examination abnormal [Not Recovered/Not Resolved]
  - Eye pain [Unknown]
  - Retinal vascular disorder [Unknown]
  - Vitreous adhesions [Recovered/Resolved]
  - Disease progression [Recovered/Resolved]
  - Pupillary reflex impaired [Unknown]
